FAERS Safety Report 20583929 (Version 1)
Quarter: 2022Q1

REPORT INFORMATION
  Report Type: Spontaneous
  Country: US (occurrence: None)
  Receive Date: 20220311
  Receipt Date: 20220311
  Transmission Date: 20220423
  Serious: Yes (Hospitalization)
  Sender: FDA-Public Use
  Company Number: None

PATIENT
  Sex: Male

DRUGS (14)
  1. HUMIRA [Suspect]
     Active Substance: ADALIMUMAB
     Indication: Crohn^s disease
     Dosage: 40MG/0.4ML??INJECT 0.4 ML UNDER THE SKIN (SUBCUTANEOUS INJECTION) EVERY 14 DAYS
     Route: 058
     Dates: start: 20210115
  2. FLUCONAZOLE [Concomitant]
  3. HUMIRA PEN [Concomitant]
  4. LISINOPRIL [Concomitant]
     Active Substance: LISINOPRIL
  5. LORAZEPAM [Concomitant]
     Active Substance: LORAZEPAM
  6. MESALAMINE ENE [Concomitant]
  7. MESALAMINE SUP [Concomitant]
  8. METHOCARBAM [Concomitant]
  9. NORTRIPTYLINE [Concomitant]
     Active Substance: NORTRIPTYLINE
  10. PREDNISONE [Concomitant]
     Active Substance: PREDNISONE
  11. PROCTOFOAM AER HC [Concomitant]
  12. TESTOSTERONE CYPIONATE [Concomitant]
     Active Substance: TESTOSTERONE CYPIONATE
  13. VALACYCLOVIR [Concomitant]
  14. FLUOXETINE [Concomitant]
     Active Substance: FLUOXETINE HYDROCHLORIDE

REACTIONS (3)
  - Skin laceration [None]
  - Skin infection [None]
  - Intentional dose omission [None]
